FAERS Safety Report 9767396 (Version 1)
Quarter: 2013Q4

REPORT INFORMATION
  Report Type: Spontaneous
  Country: GB (occurrence: GB)
  Receive Date: 20131217
  Receipt Date: 20131217
  Transmission Date: 20140711
  Serious: Yes (Other)
  Sender: FDA-Public Use
  Company Number: GB-ASTELLAS-2013EU011152

PATIENT
  Age: 53 Year
  Sex: Male

DRUGS (6)
  1. TACROLIMUS OINTMENT [Suspect]
     Indication: PYODERMA GANGRENOSUM
     Dosage: UNK %, UNKNOWN/D
     Route: 061
  2. CLOBETASOL PROPIONATE [Suspect]
     Indication: PYODERMA GANGRENOSUM
     Dosage: UNK %, UNKNOWN/D
     Route: 061
  3. PREDNISOLONE [Suspect]
     Indication: PYODERMA GANGRENOSUM
     Dosage: 0.5 MG/KG, UNKNOWN/D
     Route: 048
  4. CICLOSPORIN [Suspect]
     Indication: PYODERMA GANGRENOSUM
     Dosage: 200 MG, UNKNOWN/D
     Route: 065
  5. MYCOPHENOLATE MOFETIL [Suspect]
     Indication: PYODERMA GANGRENOSUM
     Dosage: 3 G, UNKNOWN/D
     Route: 065
  6. INFLIXIMAB [Suspect]
     Indication: PYODERMA GANGRENOSUM
     Dosage: 400 MG, UNKNOWN/D
     Route: 065

REACTIONS (2)
  - Drug ineffective for unapproved indication [Unknown]
  - Plasma cell myeloma [Unknown]
